FAERS Safety Report 9379987 (Version 1)
Quarter: 2013Q3

REPORT INFORMATION
  Report Type: Spontaneous
  Country: IT (occurrence: IT)
  Receive Date: 20130702
  Receipt Date: 20130702
  Transmission Date: 20140515
  Serious: Yes (Hospitalization)
  Sender: FDA-Public Use
  Company Number: PHHY2013IT067985

PATIENT
  Sex: Male

DRUGS (5)
  1. VOLTAREN [Suspect]
     Indication: OSTEOARTHRITIS
     Dosage: 1 DF, QD
     Route: 048
     Dates: start: 20130518, end: 20130519
  2. CARDIOASPIRIN [Suspect]
     Indication: THROMBOSIS PROPHYLAXIS
     Dosage: 100 MG, QD
     Route: 048
     Dates: start: 20130101, end: 20130524
  3. CARDIOASPIRIN [Suspect]
     Dosage: UNK UKN, UNK
     Route: 048
  4. ZOLOFT [Concomitant]
     Dosage: UNK UKN, UNK
     Route: 048
  5. ZYPREXA [Concomitant]
     Dosage: UNK UKN, UNK
     Route: 048

REACTIONS (2)
  - Hemiparesis [Unknown]
  - Cerebral haemorrhage [Unknown]
